FAERS Safety Report 5828838-4 (Version None)
Quarter: 2008Q3

REPORT INFORMATION
  Report Type: 
  Country: None (occurrence: None)
  Receive Date: 20080729
  Receipt Date: 20080729
  Transmission Date: 20090109
  Serious: No
  Sender: FDA-Public Use
  Company Number: None

PATIENT
  Age: 81 Year
  Sex: Male
  Weight: 82.32 kg

DRUGS (1)
  1. ATENOLOL [Suspect]
     Dosage: 12.5 MG EVERY DAY PO
     Route: 048
     Dates: start: 20080116, end: 20080425

REACTIONS (8)
  - BRADYCARDIA [None]
  - CHEST PAIN [None]
  - DISORIENTATION [None]
  - DIZZINESS [None]
  - FALL [None]
  - ILL-DEFINED DISORDER [None]
  - ORTHOSTATIC INTOLERANCE [None]
  - PALPITATIONS [None]
